FAERS Safety Report 15281480 (Version 3)
Quarter: 2019Q1

REPORT INFORMATION
  Report Type: Spontaneous
  Country: US (occurrence: US)
  Receive Date: 20180815
  Receipt Date: 20190103
  Transmission Date: 20190417
  Serious: Yes (Other)
  Sender: FDA-Public Use
  Company Number: US-BAYER-2018-151737

PATIENT
  Age: 30 Year
  Sex: Female
  Weight: 88.44 kg

DRUGS (7)
  1. MIRENA [Suspect]
     Active Substance: LEVONORGESTREL
  2. ALEVE [Concomitant]
     Active Substance: NAPROXEN SODIUM
  3. MIRENA [Suspect]
     Active Substance: LEVONORGESTREL
     Indication: CONTRACEPTION
     Dosage: 20 MCG/24HR, CONT
     Route: 015
     Dates: start: 20170124, end: 20170802
  4. BUPROPION. [Concomitant]
     Active Substance: BUPROPION
  5. MEDROXYPROGESTERONE ACETATE. [Concomitant]
     Active Substance: MEDROXYPROGESTERONE ACETATE
  6. LEVOTHYROXINE SODIUM. [Concomitant]
     Active Substance: LEVOTHYROXINE SODIUM
  7. IBUPROFEN. [Concomitant]
     Active Substance: IBUPROFEN

REACTIONS (11)
  - Dysmenorrhoea [None]
  - Uterine haemorrhage [None]
  - Nocturia [None]
  - Menstruation irregular [None]
  - Memory impairment [None]
  - Abdominal pain lower [None]
  - Device expulsion [None]
  - Vaginal haemorrhage [None]
  - Dyspareunia [None]
  - Neck pain [None]
  - Stress urinary incontinence [None]

NARRATIVE: CASE EVENT DATE: 2017
